FAERS Safety Report 23850890 (Version 1)
Quarter: 2024Q2

REPORT INFORMATION
  Report Type: Spontaneous
  Country: FR (occurrence: FR)
  Receive Date: 20240514
  Receipt Date: 20240514
  Transmission Date: 20240717
  Serious: Yes (Death, Hospitalization)
  Sender: FDA-Public Use
  Company Number: FR-STRIDES ARCOLAB LIMITED-2024SP005498

PATIENT
  Sex: Female

DRUGS (5)
  1. MYCOPHENOLATE MOFETIL [Suspect]
     Active Substance: MYCOPHENOLATE MOFETIL
     Indication: Immunosuppressant drug therapy
     Dosage: 250 MILLIGRAM, BID
     Route: 065
  2. MYCOPHENOLATE MOFETIL [Suspect]
     Active Substance: MYCOPHENOLATE MOFETIL
     Indication: Lung operation
  3. TACROLIMUS [Suspect]
     Active Substance: TACROLIMUS
     Indication: Immunosuppressant drug therapy
     Dosage: 0.6 MILLIGRAM, BID
     Route: 065
  4. TACROLIMUS [Suspect]
     Active Substance: TACROLIMUS
     Indication: Lung operation
  5. INSULIN NOS [Concomitant]
     Active Substance: INSULIN NOS
     Indication: Diabetes mellitus
     Dosage: UNK
     Route: 065

REACTIONS (13)
  - Cerebral haemorrhage [Fatal]
  - Nervous system disorder [Fatal]
  - Acute respiratory failure [Recovered/Resolved]
  - Fungal infection [Fatal]
  - Myelitis [Fatal]
  - Pneumonia [Recovered/Resolved]
  - Influenza [Recovered/Resolved]
  - Pulmonary mucormycosis [Recovered/Resolved]
  - Cytomegalovirus infection reactivation [Recovered/Resolved]
  - Pseudomonas infection [Recovered/Resolved]
  - Meningitis [Not Recovered/Not Resolved]
  - Phaeohyphomycosis [Unknown]
  - Off label use [Unknown]

NARRATIVE: CASE EVENT DATE: 20130301
